FAERS Safety Report 7424315-8 (Version None)
Quarter: 2011Q2

REPORT INFORMATION
  Report Type: 
  Country: None (occurrence: None)
  Receive Date: 20110419
  Receipt Date: 20110412
  Transmission Date: 20111010
  Serious: Yes (Other)
  Sender: FDA-Public Use
  Company Number: US-US-EMD SERONO, INC.-7029395

PATIENT
  Sex: Female

DRUGS (9)
  1. REBIF [Suspect]
     Indication: MULTIPLE SCLEROSIS
     Route: 058
     Dates: start: 20081028, end: 20101122
  2. VITAMIN D [Concomitant]
  3. IRON [Concomitant]
  4. MULTI-VITAMIN [Concomitant]
  5. ADVIL LIQUI-GELS [Concomitant]
     Indication: PREMEDICATION
  6. REBIF [Suspect]
     Route: 058
     Dates: start: 20110311
  7. LEVOTHYROXINE SODIUM [Concomitant]
  8. BACLOFEN [Concomitant]
  9. VITAMIN B [Concomitant]

REACTIONS (2)
  - ABORTION SPONTANEOUS [None]
  - DRUG EXPOSURE DURING PREGNANCY [None]
